FAERS Safety Report 16264096 (Version 1)
Quarter: 2019Q2

REPORT INFORMATION
  Report Type: Spontaneous
  Country: US (occurrence: US)
  Receive Date: 20190327
  Receipt Date: 20190327
  Transmission Date: 20190711
  Serious: No
  Sender: FDA-Public Use
  Company Number: None

PATIENT
  Age: 5 Year
  Sex: Female
  Weight: 13.5 kg

DRUGS (2)
  1. CHILDRENS ROBITUSSIN COUGH AND COLD CF [Suspect]
     Active Substance: DEXTROMETHORPHAN HYDROBROMIDE\GUAIFENESIN\PHENYLEPHRINE HYDROCHLORIDE
     Indication: COUGH
     Dosage: ?          QUANTITY:1 TEASPOON(S);?
     Route: 048
     Dates: start: 20190313, end: 20190313
  2. NORDIC BERRY VITAMINS BY NORDIC NATURALS AND THER-BIOTIC CHILDREN^S CH [Concomitant]

REACTIONS (1)
  - Sleep terror [None]

NARRATIVE: CASE EVENT DATE: 20190313
